FAERS Safety Report 7597417-3 (Version None)
Quarter: 2011Q3

REPORT INFORMATION
  Report Type: 
  Country: None (occurrence: None)
  Receive Date: 20110708
  Receipt Date: 20110627
  Transmission Date: 20111222
  Serious: Yes (Other)
  Sender: FDA-Public Use
  Company Number: PHHY2011GB57062

PATIENT
  Age: 64 Year
  Sex: Female

DRUGS (3)
  1. QUETIAPINE [Concomitant]
  2. ARIPIPRAZOLE [Concomitant]
     Dosage: 30 MG, DAILY
  3. CLOZAPINE [Suspect]
     Indication: SCHIZOAFFECTIVE DISORDER

REACTIONS (4)
  - NEUTROPHIL COUNT DECREASED [None]
  - PARANOIA [None]
  - ABNORMAL BEHAVIOUR [None]
  - DELUSION [None]
